FAERS Safety Report 20789673 (Version 1)
Quarter: 2022Q2

REPORT INFORMATION
  Report Type: Report from Study
  Country: BE (occurrence: BE)
  Receive Date: 20220505
  Receipt Date: 20220505
  Transmission Date: 20220720
  Serious: Yes (Death)
  Sender: FDA-Public Use
  Company Number: BE-JNJFOC-20220451115

PATIENT

DRUGS (1)
  1. REMICADE [Suspect]
     Active Substance: INFLIXIMAB
     Indication: Inflammatory bowel disease
     Route: 042

REACTIONS (10)
  - Completed suicide [Fatal]
  - Septic shock [Fatal]
  - Hypovolaemic shock [Fatal]
  - Pneumonia [Fatal]
  - Cardio-respiratory arrest [Fatal]
  - Neoplasm [Fatal]
  - Haematological malignancy [Fatal]
  - Skin disorder [Unknown]
  - Type IV hypersensitivity reaction [Unknown]
  - Infusion related reaction [Unknown]
